FAERS Safety Report 9536862 (Version 2)
Quarter: 2013Q3

REPORT INFORMATION
  Report Type: Spontaneous
  Country: JP (occurrence: JP)
  Receive Date: 20130919
  Receipt Date: 20130919
  Transmission Date: 20140515
  Serious: Yes (Other)
  Sender: FDA-Public Use
  Company Number: JP-BAYER-2013-092733

PATIENT
  Age: 69 Year
  Sex: Male
  Weight: 49 kg

DRUGS (7)
  1. STIVARGA [Suspect]
     Indication: COLON CANCER
     Dosage: 160 MG, QD ON FOR 3 WEEKS AND OFF FOR 1 WEEK
     Route: 048
     Dates: start: 20130704, end: 20130715
  2. FENTANYL CITRATE [Concomitant]
     Dosage: DAILY DOSE 4 MG
     Route: 062
  3. OXYNORM [Concomitant]
     Dosage: DAILY DOSE 10 MG
     Route: 048
  4. ELECTROLYTES WITH CARBOHYDRATES [Concomitant]
     Dosage: DAILY DOSE 2006 ML
     Dates: end: 20130806
  5. SODIUM CHLORIDE [Concomitant]
     Dosage: DAILY DOSE 60 MG
     Dates: end: 20130806
  6. MINERAMIC [Concomitant]
     Dosage: DAILY DOSE 1 DF
     Dates: end: 20130806
  7. GASTER [Concomitant]
     Dosage: DAILY DOSE 20 MG
     Dates: end: 20130806

REACTIONS (4)
  - Delirium [Not Recovered/Not Resolved]
  - Pyrexia [Recovered/Resolved]
  - Diarrhoea [Recovered/Resolved]
  - Hypertension [Recovered/Resolved]
